FAERS Safety Report 6673107-6 (Version None)
Quarter: 2010Q2

REPORT INFORMATION
  Report Type: 
  Country: None (occurrence: None)
  Receive Date: 20100408
  Receipt Date: 20100329
  Transmission Date: 20101027
  Serious: Yes (Other)
  Sender: FDA-Public Use
  Company Number: DE-SANOFI-AVENTIS-2010SA018191

PATIENT
  Age: 55 Year
  Sex: Female

DRUGS (2)
  1. TAXOTERE [Suspect]
     Route: 041
  2. TAXOTERE [Suspect]
     Route: 041
     Dates: start: 20100301, end: 20100301

REACTIONS (2)
  - INCORRECT ROUTE OF DRUG ADMINISTRATION [None]
  - PLEURAL EFFUSION [None]
